APPROVED DRUG PRODUCT: IMIPRAMINE HYDROCHLORIDE
Active Ingredient: IMIPRAMINE HYDROCHLORIDE
Strength: 50MG
Dosage Form/Route: TABLET;ORAL
Application: A090441 | Product #001
Applicant: CHARTWELL LIFE MOLECULES LLC
Approved: Mar 11, 2010 | RLD: No | RS: No | Type: DISCN